FAERS Safety Report 4459952-6 (Version None)
Quarter: 2004Q3

REPORT INFORMATION
  Report Type: 
  Country: None (occurrence: None)
  Receive Date: 20040928
  Receipt Date: 20030912
  Transmission Date: 20050211
  Serious: No
  Sender: FDA-Public Use
  Company Number: US-GLAXOSMITHKLINE-A0425677A

PATIENT
  Sex: Female

DRUGS (9)
  1. SEREVENT [Suspect]
     Indication: ASTHMA
     Dosage: 50MCG TWICE PER DAY
     Route: 055
     Dates: start: 20030729
  2. CLONAZEPAM [Concomitant]
  3. CIPROHEPTADINE [Concomitant]
  4. DESYREL [Concomitant]
  5. PREVACID [Concomitant]
  6. ZOLOFT [Concomitant]
  7. ESTROSTEP [Concomitant]
  8. ALBUTEROL [Concomitant]
  9. ACCOLATE [Concomitant]

REACTIONS (2)
  - CHEST DISCOMFORT [None]
  - DYSGEUSIA [None]
